FAERS Safety Report 19752968 (Version 2)
Quarter: 2021Q3

REPORT INFORMATION
  Report Type: Spontaneous
  Country: US (occurrence: US)
  Receive Date: 20210826
  Receipt Date: 20210901
  Transmission Date: 20211014
  Serious: Yes (Hospitalization, Other)
  Sender: FDA-Public Use
  Company Number: US-PFIZER INC-202101065733

PATIENT
  Age: 62 Year
  Sex: Female
  Weight: 76.29 kg

DRUGS (4)
  1. PRISTIQ EXTENDED?RELEASE [Suspect]
     Active Substance: DESVENLAFAXINE SUCCINATE
     Dosage: 100 MG, 1X/DAY (ONCE A DAY IN THE MORNING)
     Dates: start: 201908
  2. IRON FERROUS [Concomitant]
     Indication: BLOOD IRON DECREASED
     Dosage: 1 DF, DAILY
  3. PRISTIQ EXTENDED?RELEASE [Suspect]
     Active Substance: DESVENLAFAXINE SUCCINATE
     Indication: DEPRESSION
     Dosage: 50 MG, ONCE A DAY
     Dates: start: 201908
  4. LASIX SPECIAL [Concomitant]

REACTIONS (6)
  - Blood creatine increased [Unknown]
  - Bronchiectasis [Recovering/Resolving]
  - Swelling [Unknown]
  - Weight increased [Unknown]
  - Fluid retention [Unknown]
  - Blood potassium decreased [Unknown]

NARRATIVE: CASE EVENT DATE: 202010
